FAERS Safety Report 8306609-7 (Version None)
Quarter: 2012Q1

REPORT INFORMATION
  Report Type: 
  Country: None (occurrence: None)
  Receive Date: 20120327
  Receipt Date: 20100330
  Transmission Date: 20120608
  Serious: Yes (Other)
  Sender: FDA-Public Use
  Company Number: PHEH2009US17242

PATIENT
  Age: 87 Year
  Sex: Female

DRUGS (2)
  1. GLEEVEC [Suspect]
     Indication: CHRONIC MYELOID LEUKAEMIA
     Dosage: 300 MG FOUR TIMES  A WEEK, ORAL; 300 MG FOUR TIMES A WEEK
     Route: 048
     Dates: start: 20090915
  2. GLEEVEC [Suspect]
     Indication: CHRONIC MYELOID LEUKAEMIA
     Dosage: 300 MG FOUR TIMES  A WEEK, ORAL; 300 MG FOUR TIMES A WEEK
     Route: 048
     Dates: start: 20041101

REACTIONS (5)
  - DIARRHOEA [None]
  - STRESS [None]
  - EYE SWELLING [None]
  - GLAUCOMA [None]
  - EYELID OEDEMA [None]
